FAERS Safety Report 11353064 (Version 1)
Quarter: 2015Q3

REPORT INFORMATION
  Report Type: Spontaneous
  Country: US (occurrence: US)
  Receive Date: 20150807
  Receipt Date: 20150807
  Transmission Date: 20151125
  Serious: No
  Sender: FDA-Public Use
  Company Number: US-JNJFOC-20150401881

PATIENT
  Age: 77 Year
  Sex: Male
  Weight: 80.74 kg

DRUGS (9)
  1. VITAMIN D [Concomitant]
     Active Substance: CHOLECALCIFEROL
     Indication: ROUTINE HEALTH MAINTENANCE
     Dosage: 2 TAB PER DAY, FOR YEARS.
     Route: 065
  2. CALCIUM [Concomitant]
     Active Substance: CALCIUM
     Indication: ROUTINE HEALTH MAINTENANCE
     Dosage: 1 TAB PER DAY, FOR YEARS.
     Route: 065
  3. CINNAMON. [Concomitant]
     Active Substance: CINNAMON
     Indication: DIABETES PROPHYLAXIS
     Dosage: 1 TAB PER DAY, FOR YEARS.
     Route: 065
  4. VITAMIN C [Concomitant]
     Active Substance: ASCORBIC ACID
     Indication: ROUTINE HEALTH MAINTENANCE
     Dosage: YEARS
     Route: 065
  5. ACTIVE ADULT 50 PLUS MULTI VITAMIN [Concomitant]
     Indication: ROUTINE HEALTH MAINTENANCE
     Dosage: 1 TAB PER DAY, FOR YEARS.
     Route: 065
  6. FISH OIL [Concomitant]
     Active Substance: FISH OIL
     Indication: ROUTINE HEALTH MAINTENANCE
     Dosage: 1 TAB PER DAY, FOR YEARS.
     Route: 065
  7. MENS ROGAINE EXTRA STRENGTH [Suspect]
     Active Substance: MINOXIDIL
     Route: 061
  8. MENS ROGAINE EXTRA STRENGTH [Suspect]
     Active Substance: MINOXIDIL
     Indication: ALOPECIA
     Dosage: JUST A COUPLE OF DROPS, FOR SIX OR SEVEN YEARS.
     Route: 061
  9. BABY ASPIRIN [Concomitant]
     Active Substance: ASPIRIN
     Indication: ROUTINE HEALTH MAINTENANCE
     Dosage: 1 TAB PER DAY, FOR YEARS.
     Route: 065

REACTIONS (4)
  - Pruritus [Recovered/Resolved]
  - Inappropriate schedule of drug administration [Unknown]
  - Precancerous cells present [Recovered/Resolved]
  - Incorrect dose administered [Unknown]
